FAERS Safety Report 4290260-2 (Version None)
Quarter: 2004Q1

REPORT INFORMATION
  Report Type: 
  Country: None (occurrence: None)
  Receive Date: 20040209
  Receipt Date: 20040123
  Transmission Date: 20041129
  Serious: Yes (Death)
  Sender: FDA-Public Use
  Company Number: A-US2004-04437

PATIENT
  Age: 67 Year
  Sex: Female
  Weight: 76.2 kg

DRUGS (6)
  1. TRACLEER [Suspect]
     Indication: PULMONARY HYPERTENSION
     Dosage: 62.5 MG, BID, ORAL
     Route: 048
     Dates: start: 20030701, end: 20030727
  2. TRACLEER [Suspect]
     Indication: PULMONARY HYPERTENSION
     Dosage: 62.5 MG, BID, ORAL
     Route: 048
     Dates: start: 20030728, end: 20040102
  3. ALBUTEROL [Concomitant]
  4. AZMACORT [Concomitant]
  5. PROTONIX [Concomitant]
  6. THYROXINE ^APS^ (LEVOTHYROXINE SODIUM) [Concomitant]

REACTIONS (26)
  - ANURIA [None]
  - AORTIC VALVE SCLEROSIS [None]
  - ASPIRATION [None]
  - ASTHENIA [None]
  - ATRIAL FIBRILLATION [None]
  - BLOOD CREATINE PHOSPHOKINASE INCREASED [None]
  - BRONCHITIS [None]
  - CARDIAC ARREST [None]
  - CARDIAC FAILURE [None]
  - CARDIO-RESPIRATORY ARREST [None]
  - CONJUNCTIVAL OEDEMA [None]
  - CYANOSIS [None]
  - DYSPNOEA EXACERBATED [None]
  - GENERAL PHYSICAL HEALTH DETERIORATION [None]
  - HYPOTENSION [None]
  - METABOLIC ACIDOSIS [None]
  - MYOCARDITIS [None]
  - NASOPHARYNGITIS [None]
  - PAIN [None]
  - PERICARDIAL EFFUSION [None]
  - PULMONARY OEDEMA [None]
  - RESPIRATORY ACIDOSIS [None]
  - RESPIRATORY FAILURE [None]
  - RHONCHI [None]
  - VENTRICULAR HYPERTROPHY [None]
  - VIRAL INFECTION [None]
